FAERS Safety Report 23835324 (Version 1)
Quarter: 2024Q2

REPORT INFORMATION
  Report Type: Spontaneous
  Country: US (occurrence: US)
  Receive Date: 20240509
  Receipt Date: 20240509
  Transmission Date: 20240715
  Serious: No
  Sender: FDA-Public Use
  Company Number: US-AMGEN-USASP2024090546

PATIENT
  Age: 86 Year
  Sex: Male

DRUGS (3)
  1. REPATHA [Suspect]
     Active Substance: EVOLOCUMAB
     Indication: High density lipoprotein decreased
     Dosage: 420 MILLIGRAM, QMO
     Route: 065
     Dates: start: 2017
  2. REPATHA [Suspect]
     Active Substance: EVOLOCUMAB
     Dosage: 420 MILLIGRAM, Q6WK
     Route: 065
  3. REPATHA [Suspect]
     Active Substance: EVOLOCUMAB
     Dosage: 420 MILLIGRAM, Q6WK
     Route: 065

REACTIONS (5)
  - Wrong technique in product usage process [Unknown]
  - Drug dose omission by device [Unknown]
  - High density lipoprotein decreased [Unknown]
  - Device difficult to use [Unknown]
  - Inappropriate schedule of product administration [Unknown]

NARRATIVE: CASE EVENT DATE: 20240425
